FAERS Safety Report 5162256-X (Version None)
Quarter: 2006Q4

REPORT INFORMATION
  Report Type: 
  Country: None (occurrence: None)
  Receive Date: 20061121
  Receipt Date: 20061116
  Transmission Date: 20070319
  Serious: Yes (Hospitalization)
  Sender: FDA-Public Use
  Company Number: 2006SP003092

PATIENT
  Age: 43 Year
  Sex: Female

DRUGS (8)
  1. PEG-INTRON [Suspect]
     Indication: HEPATITIS C
     Dosage: 120 MCG; QW; SC
     Route: 058
     Dates: start: 20060818, end: 20060906
  2. REBETOL [Suspect]
     Indication: HEPATITIS C
     Dosage: 1200 MG; QD; PO
     Route: 048
     Dates: start: 20060818, end: 20060906
  3. OXYBUTRIN [Concomitant]
  4. SEROQUEL [Concomitant]
  5. MECLIZINE [Concomitant]
  6. AMBIEN [Concomitant]
  7. CLONAZEPAM [Concomitant]
  8. KADIAN [Concomitant]

REACTIONS (9)
  - BRAIN HYPOXIA [None]
  - DEHYDRATION [None]
  - FALL [None]
  - LOSS OF CONSCIOUSNESS [None]
  - MEMORY IMPAIRMENT [None]
  - MENTAL STATUS CHANGES [None]
  - OVERDOSE [None]
  - PYREXIA [None]
  - SUICIDE ATTEMPT [None]
